FAERS Safety Report 9691729 (Version 1)
Quarter: 2013Q4

REPORT INFORMATION
  Report Type: Report from Study
  Country: DE (occurrence: DE)
  Receive Date: 20131115
  Receipt Date: 20131115
  Transmission Date: 20140711
  Serious: Yes (Hospitalization)
  Sender: FDA-Public Use
  Company Number: DE-ABBVIE-13P-062-1167274-00

PATIENT
  Age: 42 Year
  Sex: Female
  Weight: 65 kg

DRUGS (3)
  1. HUMIRA [Suspect]
     Indication: CROHN^S DISEASE
     Route: 058
     Dates: start: 20100319, end: 201305
  2. HUMIRA [Suspect]
     Route: 058
     Dates: start: 201305, end: 201308
  3. HUMIRA [Suspect]
     Route: 058
     Dates: start: 201308

REACTIONS (1)
  - Gastrointestinal stenosis [Recovered/Resolved]
